FAERS Safety Report 9450071 (Version 2)
Quarter: 2013Q3

REPORT INFORMATION
  Report Type: Spontaneous
  Country: US (occurrence: US)
  Receive Date: 20130809
  Receipt Date: 20130906
  Transmission Date: 20140515
  Serious: Yes (Other)
  Sender: FDA-Public Use
  Company Number: US-BAYER-2013-094118

PATIENT
  Age: 25 Year
  Sex: Female
  Weight: 65.31 kg

DRUGS (6)
  1. MIRENA [Suspect]
     Indication: CONTRACEPTION
     Dosage: 20 MCG/24HR, CONT
     Route: 015
     Dates: start: 20120912, end: 20130709
  2. COQ10 [Concomitant]
     Dosage: 10 MG, QD
  3. BIOTIN [Concomitant]
     Dosage: 5 MG, QD
  4. ADDERALL [Concomitant]
     Dosage: 10 MG, QD
  5. ZOLOFT [Concomitant]
     Dosage: 12.5 MG, QD
  6. ECHINACEA [Concomitant]
     Dosage: 500 MG, QD

REACTIONS (2)
  - Chlamydial pelvic inflammatory disease [Recovered/Resolved]
  - Pain [None]
